FAERS Safety Report 5062496-4 (Version None)
Quarter: 2006Q3

REPORT INFORMATION
  Report Type: 
  Country: None (occurrence: None)
  Receive Date: 20060721
  Receipt Date: 20060705
  Transmission Date: 20061208
  Serious: Yes (Death, Life-Threatening, Hospitalization)
  Sender: FDA-Public Use
  Company Number: AND_0372_2006

PATIENT
  Age: 69 Year
  Sex: Female
  Weight: 60 kg

DRUGS (7)
  1. METFORMIN [Suspect]
     Indication: DIABETES MELLITUS NON-INSULIN-DEPENDENT
     Dosage: DF PO
     Route: 048
     Dates: end: 20060208
  2. PERINDOPRIL [Suspect]
     Indication: DIABETIC NEUROPATHY
     Dosage: DF PO
     Route: 048
     Dates: end: 20060208
  3. ACARBOSE [Concomitant]
  4. CALCICHEW [Concomitant]
  5. FERROUS SULFATE TAB [Concomitant]
  6. FOLIC ACID [Concomitant]
  7. GLICLAZIDE [Concomitant]

REACTIONS (2)
  - METABOLIC ACIDOSIS [None]
  - RENAL FAILURE ACUTE [None]
